FAERS Safety Report 23332883 (Version 2)
Quarter: 2024Q1

REPORT INFORMATION
  Report Type: Spontaneous
  Country: US (occurrence: US)
  Receive Date: 20231222
  Receipt Date: 20240219
  Transmission Date: 20240409
  Serious: No
  Sender: FDA-Public Use
  Company Number: US-CTI BIOPHARMA-2023US04179

PATIENT

DRUGS (19)
  1. VONJO [Suspect]
     Active Substance: PACRITINIB
     Indication: Myelofibrosis
     Dosage: 100 MG, QD
     Route: 048
     Dates: start: 202309
  2. ACETAMINOPHEN [Concomitant]
     Active Substance: ACETAMINOPHEN
  3. ACYCLOVIR [Concomitant]
     Active Substance: ACYCLOVIR
  4. AMLODIPINE [Concomitant]
     Active Substance: AMLODIPINE BESYLATE
  5. VITAMIN B12 [Concomitant]
     Active Substance: CYANOCOBALAMIN
  6. CICLOPIROX [Concomitant]
     Active Substance: CICLOPIROX\TOCOPHEROL
  7. MELATONIN [Concomitant]
     Active Substance: MELATONIN
  8. FOSINOPRIL [Concomitant]
     Active Substance: FOSINOPRIL
  9. ACETAMINOPHEN\HYDROCODONE [Concomitant]
     Active Substance: ACETAMINOPHEN\HYDROCODONE
  10. MAXZIDE [Concomitant]
     Active Substance: HYDROCHLOROTHIAZIDE\TRIAMTERENE
  11. LOPERAMIDE [Concomitant]
     Active Substance: LOPERAMIDE
  12. VITAMIN D3 [Concomitant]
     Active Substance: CHOLECALCIFEROL
  13. XARELTO [Concomitant]
     Active Substance: RIVAROXABAN
  14. TYLENOL [Concomitant]
     Active Substance: ACETAMINOPHEN
  15. NORCO [Concomitant]
     Active Substance: ACETAMINOPHEN\HYDROCODONE BITARTRATE
  16. JAKAFI [Concomitant]
     Active Substance: RUXOLITINIB
  17. JARDIANCE [Concomitant]
     Active Substance: EMPAGLIFLOZIN
  18. METOPROLOL [Concomitant]
     Active Substance: METOPROLOL
  19. TERBINAFINE [Concomitant]
     Active Substance: TERBINAFINE

REACTIONS (4)
  - Tachycardia [Unknown]
  - Heart rate irregular [Not Recovered/Not Resolved]
  - Atrial fibrillation [Unknown]
  - Dizziness [Not Recovered/Not Resolved]
